FAERS Safety Report 10337746 (Version 3)
Quarter: 2015Q1

REPORT INFORMATION
  Report Type: Spontaneous
  Country: US (occurrence: US)
  Receive Date: 20140724
  Receipt Date: 20150119
  Transmission Date: 20150720
  Serious: No
  Sender: FDA-Public Use
  Company Number: US-UNITED THERAPEUTICS-UTC-045362

PATIENT
  Age: 73 Year
  Sex: Male
  Weight: 88.89 kg

DRUGS (3)
  1. TYVASO [Suspect]
     Active Substance: TREPROSTINIL
     Dosage: 18-54 MICROGRAMS, QID
     Dates: start: 20140219
  2. REVATIO [Concomitant]
     Active Substance: SILDENAFIL CITRATE
  3. ASPIRIN. [Concomitant]
     Active Substance: ASPIRIN

REACTIONS (9)
  - Diarrhoea [Not Recovered/Not Resolved]
  - Cough [Unknown]
  - Headache [Unknown]
  - Hypotension [Unknown]
  - Throat irritation [Unknown]
  - Chest discomfort [Unknown]
  - Asthenia [Unknown]
  - Rhinorrhoea [Unknown]
  - Emotional disorder [Unknown]

NARRATIVE: CASE EVENT DATE: 201402
